FAERS Safety Report 6572946-X (Version None)
Quarter: 2010Q1

REPORT INFORMATION
  Report Type: 
  Country: None (occurrence: None)
  Receive Date: 20100208
  Receipt Date: 20100129
  Transmission Date: 20100710
  Serious: Yes (Hospitalization, Other)
  Sender: FDA-Public Use
  Company Number: US-BIOGENIDEC-2008BI034171

PATIENT
  Age: 58 Year
  Sex: Female

DRUGS (2)
  1. AVONEX [Suspect]
     Indication: MULTIPLE SCLEROSIS
     Route: 030
     Dates: start: 20070810, end: 20071201
  2. AVONEX [Suspect]
     Route: 030
     Dates: start: 20080623

REACTIONS (7)
  - BLOOD POTASSIUM DECREASED [None]
  - CHEST PAIN [None]
  - GAIT DISTURBANCE [None]
  - INTRAOCULAR PRESSURE INCREASED [None]
  - PAIN [None]
  - RETINAL DETACHMENT [None]
  - VOMITING [None]
